FAERS Safety Report 8915301 (Version 1)
Quarter: 2012Q4

REPORT INFORMATION
  Report Type: 
  Country: US (occurrence: US)
  Receive Date: 20121119
  Receipt Date: 20121119
  Transmission Date: 20130627
  Serious: Yes (Hospitalization, Disabling, Other)
  Sender: FDA-Public Use
  Company Number: 2012P1036762

PATIENT
  Age: 68 Year
  Sex: Male
  Weight: 88.45 kg

DRUGS (2)
  1. OXICONAZOLE NITRATE [Suspect]
     Indication: TINEA PEDIS
     Route: 061
     Dates: start: 20120418, end: 20120515
  2. ACETYLSALICYLIC ACID [Concomitant]
     Dates: start: 1998

REACTIONS (2)
  - Cerebrovascular accident [Recovered/Resolved]
  - Hyperlipidaemia [Unknown]
